FAERS Safety Report 7536726-0 (Version None)
Quarter: 2011Q2

REPORT INFORMATION
  Report Type: 
  Country: None (occurrence: None)
  Receive Date: 20110609
  Receipt Date: 20110602
  Transmission Date: 20111010
  Serious: Yes (Other)
  Sender: FDA-Public Use
  Company Number: B0724238A

PATIENT
  Sex: Male

DRUGS (4)
  1. URSO 250 [Concomitant]
     Route: 048
  2. URIEF [Concomitant]
     Route: 048
  3. EBRANTIL [Concomitant]
     Route: 048
  4. DUTASTERIDE [Suspect]
     Indication: BENIGN PROSTATIC HYPERPLASIA
     Route: 048
     Dates: start: 20101001, end: 20110601

REACTIONS (1)
  - LIVER FUNCTION TEST ABNORMAL [None]
